FAERS Safety Report 7203599-5 (Version None)
Quarter: 2010Q4

REPORT INFORMATION
  Report Type: 
  Country: None (occurrence: None)
  Receive Date: 20101228
  Receipt Date: 20101228
  Transmission Date: 20110411
  Serious: Yes (Death)
  Sender: FDA-Public Use
  Company Number: None

PATIENT
  Age: 67 Year
  Sex: Male
  Weight: 122 kg

DRUGS (1)
  1. METFORMIN HCL [Suspect]

REACTIONS (2)
  - LACTIC ACIDOSIS [None]
  - RESPIRATORY DISTRESS [None]
